FAERS Safety Report 4487352-1 (Version None)
Quarter: 2004Q4

REPORT INFORMATION
  Report Type: 
  Country: None (occurrence: None)
  Receive Date: 20041027
  Receipt Date: 20020715
  Transmission Date: 20050328
  Serious: Yes (Death, Life-Threatening, Hospitalization)
  Sender: FDA-Public Use
  Company Number: US-MERCK-0207USA01402

PATIENT
  Age: 60 Year
  Sex: Female
  Weight: 61 kg

DRUGS (27)
  1. VIOXX [Suspect]
     Indication: ARTHRALGIA
     Route: 048
     Dates: start: 19990607, end: 20000511
  2. VIOXX [Suspect]
     Route: 048
     Dates: start: 19990607, end: 20000511
  3. VIOXX [Suspect]
     Route: 048
     Dates: start: 19990607, end: 20000511
  4. VIOXX [Suspect]
     Indication: BURSITIS
     Route: 048
     Dates: start: 19990607, end: 20000511
  5. VIOXX [Suspect]
     Route: 048
     Dates: start: 19990607, end: 20000511
  6. VIOXX [Suspect]
     Route: 048
     Dates: start: 19990607, end: 20000511
  7. HYDROXYZINE HYDROCHLORIDE [Concomitant]
     Route: 065
     Dates: start: 19990101
  8. TRIAMCINOLONE [Concomitant]
     Route: 065
     Dates: start: 19990101
  9. VOLTAREN [Concomitant]
     Route: 065
     Dates: start: 19990101
  10. SOMA [Concomitant]
     Route: 065
     Dates: start: 19990101
  11. CIPRO [Concomitant]
     Indication: INFECTION
     Route: 065
     Dates: start: 19990101
  12. ZITHROMAX [Concomitant]
     Route: 065
     Dates: start: 19990101
  13. BENZONATATE [Concomitant]
     Indication: COUGH
     Route: 065
     Dates: start: 19990101
  14. PROVENTIL REPETABS AND TABLETS [Concomitant]
     Route: 065
     Dates: start: 19990101
  15. LORABID [Concomitant]
     Indication: INFECTION
     Route: 065
     Dates: start: 19990101
  16. PRILOSEC [Concomitant]
     Route: 065
     Dates: start: 19990101
  17. ZYRTEC [Concomitant]
     Route: 065
     Dates: start: 19990101
  18. VICODIN [Concomitant]
     Route: 065
     Dates: start: 19990101
  19. CLARITIN-D [Concomitant]
     Indication: HYPERSENSITIVITY
     Route: 065
     Dates: start: 19990101
  20. TEQUIN [Concomitant]
     Route: 065
     Dates: start: 19990101
  21. TUSSI-12 [Concomitant]
     Route: 065
     Dates: start: 19990101
  22. LORAZEPAM [Concomitant]
     Route: 065
     Dates: start: 19990101
  23. PREMPRO [Concomitant]
     Indication: HORMONE REPLACEMENT THERAPY
     Route: 065
     Dates: start: 20010608, end: 20010718
  24. REMERON [Concomitant]
     Route: 065
     Dates: end: 20010701
  25. PREVACID [Concomitant]
     Route: 065
     Dates: start: 19990101
  26. DITROPAN [Concomitant]
     Indication: POLLAKIURIA
     Route: 065
     Dates: start: 19990101
  27. PROMETHAZINE [Concomitant]
     Route: 065
     Dates: start: 19990101

REACTIONS (20)
  - ANGINA PECTORIS [None]
  - BLOOD CHOLESTEROL INCREASED [None]
  - CARDIAC ARREST [None]
  - CORONARY ARTERY ATHEROSCLEROSIS [None]
  - CYSTOCELE [None]
  - DILATATION VENTRICULAR [None]
  - FIBROMYALGIA [None]
  - HEPATIC STEATOSIS [None]
  - HEPATOMEGALY [None]
  - MUSCLE SPASMS [None]
  - MYOCARDIAL INFARCTION [None]
  - PLEURAL ADHESION [None]
  - PNEUMONIA [None]
  - PULMONARY OEDEMA [None]
  - SCOLIOSIS [None]
  - SINUS TACHYCARDIA [None]
  - STRESS INCONTINENCE [None]
  - SUDDEN CARDIAC DEATH [None]
  - VAGINAL PROLAPSE [None]
  - VENTRICULAR DYSKINESIA [None]
